FAERS Safety Report 8911615 (Version 3)
Quarter: 2012Q4

REPORT INFORMATION
  Report Type: 
  Country: US (occurrence: US)
  Receive Date: 20121115
  Receipt Date: 20121220
  Transmission Date: 20130627
  Serious: Yes (Other)
  Sender: FDA-Public Use
  Company Number: US-PFIZER INC-2012284479

PATIENT
  Age: 52 Year
  Sex: Female
  Weight: 107 kg

DRUGS (6)
  1. LYRICA [Suspect]
     Indication: NEUROPATHIC PAIN
     Dosage: 100 mg, 2x/day
     Dates: end: 2012
  2. LISINOPRIL [Concomitant]
     Indication: BLOOD PRESSURE HIGH
     Dosage: 10 mg, daily
  3. CELEXA [Concomitant]
     Indication: DEPRESSION
     Dosage: 20 mg, daily
  4. HUMALOG [Concomitant]
     Indication: DIABETES
     Dosage: UNK, 2x/day
  5. LANTUS [Concomitant]
     Indication: DIABETES
     Dosage: UNK, 2x/day
  6. ADVAIR [Concomitant]
     Indication: CHRONIC OBSTRUCTIVE PULMONARY DISEASE
     Dosage: UNK, 2x/day

REACTIONS (4)
  - Restless legs syndrome [Unknown]
  - Feeling abnormal [Unknown]
  - Pain [Unknown]
  - Hypoaesthesia [Unknown]
